FAERS Safety Report 12880899 (Version 3)
Quarter: 2022Q3

REPORT INFORMATION
  Report Type: Spontaneous
  Country: KR (occurrence: KR)
  Receive Date: 20161025
  Receipt Date: 20220719
  Transmission Date: 20221026
  Serious: Yes (Life-Threatening, Hospitalization, Other)
  Sender: FDA-Public Use
  Company Number: KR-SA-2016SA194011

PATIENT
  Age: 70 Year
  Sex: Male
  Weight: 50 kg

DRUGS (12)
  1. PLAVIX [Suspect]
     Active Substance: CLOPIDOGREL BISULFATE
     Indication: Product used for unknown indication
     Dosage: 75 MG,QD
     Route: 065
  2. HEPARIN SODIUM [Concomitant]
     Active Substance: HEPARIN SODIUM
     Indication: Anticoagulant therapy
     Dosage: 1000 IU
     Route: 042
  3. IRBESARTAN [Concomitant]
     Active Substance: IRBESARTAN
     Dosage: 150 MG,QD
  4. SIMVASTATIN [Concomitant]
     Active Substance: SIMVASTATIN
     Dosage: 10 MG,QD
  5. METFORMIN [Concomitant]
     Active Substance: METFORMIN HYDROCHLORIDE
     Dosage: 850 MG,QD
  6. THIOPENTAL SODIUM [Concomitant]
     Active Substance: THIOPENTAL SODIUM
     Indication: Anaesthesia
     Dosage: 300 MG,UNK
  7. FENTANYL [Concomitant]
     Active Substance: FENTANYL
     Indication: Anaesthesia
     Dosage: 50 UG,UNK
  8. ROCURONIUM [Concomitant]
     Active Substance: ROCURONIUM BROMIDE
     Indication: Anaesthesia
     Dosage: 50 MG,UNK
  9. SEVOFLURANE [Concomitant]
     Active Substance: SEVOFLURANE
     Indication: Anaesthesia
     Dosage: UNK
  10. OXYGEN [Concomitant]
     Active Substance: OXYGEN
     Indication: Anaesthesia
     Dosage: UNK
  11. NEOSTIGMINE [Concomitant]
     Active Substance: NEOSTIGMINE
     Indication: Neuromuscular blockade reversal
     Dosage: 1.5 MG,UNK
  12. GLYCOPYRRONIUM [Concomitant]
     Active Substance: GLYCOPYRRONIUM
     Indication: Neuromuscular blockade reversal
     Dosage: .4 MG,UNK

REACTIONS (7)
  - Pulmonary alveolar haemorrhage [Recovered/Resolved]
  - Cough [Recovered/Resolved]
  - Haemoptysis [Recovered/Resolved]
  - Rhonchi [Recovered/Resolved]
  - Lung infiltration [Recovered/Resolved]
  - Respiratory failure [Recovered/Resolved]
  - Hypoxia [Recovered/Resolved]
